FAERS Safety Report 15230092 (Version 2)
Quarter: 2019Q3

REPORT INFORMATION
  Report Type: Spontaneous
  Country: US (occurrence: US)
  Receive Date: 20180802
  Receipt Date: 20190805
  Transmission Date: 20191004
  Serious: Yes (Other)
  Sender: FDA-Public Use
  Company Number: US-ACCORD-065265

PATIENT
  Age: 49 Year
  Sex: Female

DRUGS (4)
  1. CYTOXAN [Suspect]
     Active Substance: CYCLOPHOSPHAMIDE
     Indication: BREAST CANCER
     Dosage: NO OF CYCLES RECEIVED: 04
     Dates: start: 20140314, end: 20140516
  2. ATENOLOL/ATENOLOL HYDROCHLORIDE [Concomitant]
     Dates: start: 1983
  3. DIOVAN [Concomitant]
     Active Substance: VALSARTAN
     Dates: start: 1983
  4. DOCETAXEL ACCORD [Suspect]
     Active Substance: DOCETAXEL
     Indication: BREAST CANCER
     Dosage: NO OF CYCLES RECEIVED: 04
     Dates: start: 20140314, end: 20140516

REACTIONS (1)
  - Alopecia [Not Recovered/Not Resolved]

NARRATIVE: CASE EVENT DATE: 20140516
